FAERS Safety Report 6982710-5 (Version None)
Quarter: 2010Q3

REPORT INFORMATION
  Report Type: 
  Country: None (occurrence: None)
  Receive Date: 20100914
  Receipt Date: 20100317
  Transmission Date: 20110219
  Serious: Yes (Other)
  Sender: FDA-Public Use
  Company Number: US-PFIZER INC-2010034702

PATIENT
  Sex: Male
  Weight: 113.38 kg

DRUGS (6)
  1. LYRICA [Suspect]
     Indication: CONVULSION
     Dosage: 100 MG, 2X/DAY
     Route: 048
     Dates: start: 20090101
  2. POTASSIUM CHLORIDE [Concomitant]
     Dosage: 10 MG, 1X/DAY
     Route: 048
  3. DIAZEPAM [Concomitant]
     Indication: ANXIETY
     Dosage: 2.5 MG, 1X/DAY
     Route: 048
  4. CARBAMAZEPINE [Concomitant]
     Indication: CONVULSION
     Dosage: 400 MG, 1X/DAY
     Route: 048
  5. SIMVASTATIN [Concomitant]
     Dosage: 40 MG, 1X/DAY
     Route: 048
  6. FUROSEMIDE [Concomitant]
     Dosage: 40 MG, 1X/DAY
     Route: 048

REACTIONS (1)
  - CONVULSION [None]
